FAERS Safety Report 17996965 (Version 1)
Quarter: 2020Q3

REPORT INFORMATION
  Report Type: Spontaneous
  Country: SI (occurrence: SI)
  Receive Date: 20200708
  Receipt Date: 20200708
  Transmission Date: 20201103
  Serious: Yes (Other)
  Sender: FDA-Public Use
  Company Number: SI-TEVA-2020-SI-1797999

PATIENT
  Age: 60 Year
  Sex: Female

DRUGS (1)
  1. PACLITAXIN 6 MG/ML, KONCENTRAT ZA RAZTOPINO ZA INFUNDIRANJE [Suspect]
     Active Substance: PACLITAXEL
     Indication: OVARIAN CANCER
     Dosage: 330 MILLIGRAM
     Route: 042
     Dates: start: 20200615, end: 20200615

REACTIONS (1)
  - Infusion related reaction [Recovered/Resolved]

NARRATIVE: CASE EVENT DATE: 20200615
